FAERS Safety Report 8449302-2 (Version None)
Quarter: 2012Q2

REPORT INFORMATION
  Report Type: 
  Country: None (occurrence: None)
  Receive Date: 20120619
  Receipt Date: 20120605
  Transmission Date: 20120825
  Serious: No
  Sender: FDA-Public Use
  Company Number: US-ASTRAZENECA-2012SE37861

PATIENT
  Age: 61 Year
  Sex: Male

DRUGS (4)
  1. DIAZEPAM [Concomitant]
  2. MAGNESIUM HYDROXIDE TAB [Concomitant]
  3. METFORMIN HYDROCHLORIDE [Concomitant]
  4. NEXIUM [Suspect]
     Route: 048

REACTIONS (4)
  - HYPOAESTHESIA [None]
  - GASTROOESOPHAGEAL REFLUX DISEASE [None]
  - DRUG DOSE OMISSION [None]
  - CHEST DISCOMFORT [None]
